FAERS Safety Report 23315886 (Version 2)
Quarter: 2024Q1

REPORT INFORMATION
  Report Type: Report from Study
  Country: CN (occurrence: CN)
  Receive Date: 20231219
  Receipt Date: 20240117
  Transmission Date: 20240410
  Serious: No
  Sender: FDA-Public Use
  Company Number: CN-PFIZER INC-PV202300203026

PATIENT
  Age: 94 Year
  Sex: Female

DRUGS (14)
  1. NIRMATRELVIR\RITONAVIR [Suspect]
     Active Substance: NIRMATRELVIR\RITONAVIR
     Indication: COVID-19
     Dosage: [NIRMATRELVIR 300 MG/RITONAVIR 100 MG], BID, PC
     Dates: start: 20220428, end: 20220503
  2. NIRMATRELVIR\RITONAVIR [Suspect]
     Active Substance: NIRMATRELVIR\RITONAVIR
     Dosage: [NIRMATRELVIR 300 MG/RITONAVIR 100 MG], BID, PC
     Dates: start: 20220504, end: 20220509
  3. OXYGEN [Concomitant]
     Active Substance: OXYGEN
     Indication: COVID-19 treatment
     Dosage: OXYGEN INHALATION
     Route: 045
     Dates: start: 20220422, end: 20220427
  4. POTASSIUM CHLORIDE [Concomitant]
     Active Substance: POTASSIUM CHLORIDE
     Indication: Mineral supplementation
     Dosage: SUSTAINED-RELEASE TABLETS
     Route: 048
     Dates: start: 20220423, end: 20220509
  5. NADROPARIN CALCIUM [Concomitant]
     Active Substance: NADROPARIN CALCIUM
     Indication: COVID-19 treatment
     Dosage: UNK
     Route: 058
     Dates: start: 20220430, end: 20220501
  6. NADROPARIN CALCIUM [Concomitant]
     Active Substance: NADROPARIN CALCIUM
     Dosage: UNK
     Dates: start: 20220504, end: 20220509
  7. HEPARIN SODIUM [Concomitant]
     Active Substance: HEPARIN SODIUM
     Indication: Anticoagulant therapy
     Dosage: UNK
     Route: 058
     Dates: start: 20220501, end: 20220504
  8. HERBALS\MENTHOL [Concomitant]
     Active Substance: HERBALS\MENTHOL
     Indication: COVID-19 treatment
     Dosage: UNK
     Route: 048
     Dates: start: 20220422, end: 20220422
  9. HERBALS [Concomitant]
     Active Substance: HERBALS
     Indication: COVID-19 treatment
     Dosage: UNK
     Route: 048
     Dates: start: 20220422, end: 20220422
  10. LACTULOSE [Concomitant]
     Active Substance: LACTULOSE
     Indication: Laxative supportive care
     Dosage: UNK
     Route: 048
     Dates: start: 20220425, end: 20220425
  11. DEXAMETHASONE SODIUM PHOSPHATE [Concomitant]
     Active Substance: DEXAMETHASONE PHOSPHATE\DEXAMETHASONE SODIUM PHOSPHATE
     Dosage: UNK
     Route: 042
     Dates: start: 20220428, end: 20220428
  12. OMEPRAZOLE [Concomitant]
     Active Substance: OMEPRAZOLE
     Dosage: UNK
     Route: 042
     Dates: start: 20220428, end: 20220428
  13. NIFEDIPINE [Concomitant]
     Active Substance: NIFEDIPINE
     Indication: Blood pressure decreased
     Dosage: UNK
     Route: 048
     Dates: start: 20220506, end: 20220506
  14. NIFEDIPINE [Concomitant]
     Active Substance: NIFEDIPINE
     Dosage: UNK
     Route: 048
     Dates: start: 20220508, end: 20220508

REACTIONS (1)
  - Overdose [Unknown]
